FAERS Safety Report 7712319-7 (Version None)
Quarter: 2011Q3

REPORT INFORMATION
  Report Type: 
  Country: None (occurrence: None)
  Receive Date: 20110826
  Receipt Date: 20110824
  Transmission Date: 20111222
  Serious: Yes (Death, Hospitalization)
  Sender: FDA-Public Use
  Company Number: BR-ROCHE-656811

PATIENT
  Sex: Female
  Weight: 89.5 kg

DRUGS (7)
  1. ACETAMINOPHEN W/ CODEINE [Concomitant]
  2. INTERFERON ALFA-2A [Suspect]
     Indication: RENAL CANCER
     Dosage: DOSE: 6 MU
     Route: 058
     Dates: start: 20090904, end: 20090911
  3. CAPTOPRIL [Concomitant]
     Indication: HYPERTENSION
     Dates: start: 20040101, end: 20090911
  4. OMEPRAZOLE [Concomitant]
     Dates: start: 20080101, end: 20090911
  5. BEVACIZUMAB [Suspect]
     Indication: RENAL CANCER
     Dosage: TOTAL DOSE: 895 MG
     Route: 042
     Dates: start: 20090904, end: 20090911
  6. PROPRANOLOL HCL [Concomitant]
     Indication: HYPERTENSION
     Dates: start: 20040101, end: 20090911
  7. LITHIUM CARBONATE [Concomitant]

REACTIONS (2)
  - CONFUSIONAL STATE [None]
  - METASTASES TO MENINGES [None]
